FAERS Safety Report 11678170 (Version 4)
Quarter: 2015Q4

REPORT INFORMATION
  Report Type: Report from Study
  Country: BE (occurrence: BE)
  Receive Date: 20151028
  Receipt Date: 20151201
  Transmission Date: 20160304
  Serious: Yes (Hospitalization)
  Sender: FDA-Public Use
  Company Number: BE-ABBVIE-15P-013-1484548-00

PATIENT
  Sex: Male

DRUGS (8)
  1. DUODOPA [Suspect]
     Active Substance: CARBIDOPA\LEVODOPA
     Dosage: AM=3ML; CD=2.6ML/H DURING 16HRS; ED=3ML; ND=2ML/H DURING 8HRS
     Route: 050
     Dates: start: 20151016, end: 20151021
  2. CRESTOR [Concomitant]
     Active Substance: ROSUVASTATIN CALCIUM
     Indication: PRODUCT USED FOR UNKNOWN INDICATION
  3. PROLOPA HBS [Concomitant]
     Active Substance: BENSERAZIDE\LEVODOPA
     Indication: PRODUCT USED FOR UNKNOWN INDICATION
  4. DUODOPA [Suspect]
     Active Substance: CARBIDOPA\LEVODOPA
     Indication: PARKINSON^S DISEASE
     Dosage: AM=3ML; CD=2.4ML/H DURING 16HRS; ED=2.5ML; ND=2ML/H DURING 8HRS
     Route: 050
     Dates: start: 20151012, end: 20151016
  5. EMCONCOR [Concomitant]
     Active Substance: BISOPROLOL FUMARATE
     Indication: PRODUCT USED FOR UNKNOWN INDICATION
  6. CLEXANE [Concomitant]
     Active Substance: ENOXAPARIN SODIUM
     Indication: PRODUCT USED FOR UNKNOWN INDICATION
     Route: 058
  7. ASAFLOW [Concomitant]
     Active Substance: ASPIRIN
     Indication: PRODUCT USED FOR UNKNOWN INDICATION
  8. DUODOPA [Suspect]
     Active Substance: CARBIDOPA\LEVODOPA
     Dosage: AM=10ML; CD=2.7ML/H DURING 16HRS; ED=3ML
     Route: 050
     Dates: start: 20151021

REACTIONS (10)
  - Poor quality sleep [Recovering/Resolving]
  - Nervousness [Recovering/Resolving]
  - Pain threshold decreased [Unknown]
  - Drug ineffective [Unknown]
  - Device dislocation [Unknown]
  - Abdominal pain [Recovering/Resolving]
  - Device issue [Unknown]
  - Mobility decreased [Unknown]
  - Depressed mood [Recovering/Resolving]
  - Muscle rigidity [Unknown]
